FAERS Safety Report 7289229-5 (Version None)
Quarter: 2011Q1

REPORT INFORMATION
  Report Type: 
  Country: None (occurrence: None)
  Receive Date: 20110201
  Receipt Date: 20110117
  Transmission Date: 20110831
  Serious: Yes (Other)
  Sender: FDA-Public Use
  Company Number: 2011P1003980

PATIENT
  Age: 55 Year
  Sex: Female

DRUGS (6)
  1. FENTANYL [Suspect]
     Dosage: TDER
     Route: 062
  2. PROPOXY-N/APAP (GENERIC DARVOCET N-100) (NO PREF. NAME) [Suspect]
     Indication: FIBROMYALGIA
     Dosage: QID;PO
     Route: 048
     Dates: start: 20060101, end: 20101201
  3. PROCOTOZONE/HC CREAM 2.5% [Concomitant]
  4. TRAZODONE HCL [Concomitant]
  5. XANAX [Concomitant]
  6. LIDODERM [Concomitant]

REACTIONS (4)
  - HYPERHIDROSIS [None]
  - PAIN [None]
  - CHILLS [None]
  - PARAESTHESIA [None]
